FAERS Safety Report 24346808 (Version 2)
Quarter: 2024Q4

REPORT INFORMATION
  Report Type: Spontaneous
  Country: DE (occurrence: DE)
  Receive Date: 20240921
  Receipt Date: 20241030
  Transmission Date: 20250115
  Serious: Yes (Hospitalization, Other)
  Sender: AUROBINDO
  Company Number: DE-SAMSUNG BIOEPIS-SB-2024-24612

PATIENT
  Age: 76 Year
  Sex: Male
  Weight: 86.2 kg

DRUGS (13)
  1. DOCETAXEL [Suspect]
     Active Substance: DOCETAXEL
     Indication: Oesophageal adenocarcinoma
     Dosage: 50 MILLIGRAM/SQ. METER (50 MG/M2, IV, D1/D15/D29 AND D43 PRE- AND POST OP. DOSE GIVEN BEFORE EVENT O
     Route: 042
     Dates: start: 20240318
  2. DOCETAXEL [Suspect]
     Active Substance: DOCETAXEL
     Dosage: 70 MILLIGRAM (50 MG/M2, IV, D1/D15/D29 AND D43 PRE- AND POST OP. DOSE GIVEN BEFORE EVENT ONSET WAS 7
     Route: 042
     Dates: start: 20240318
  3. LEUCOVORIN [Suspect]
     Active Substance: LEUCOVORIN\LEUCOVORIN CALCIUM
     Indication: Oesophageal adenocarcinoma
     Dosage: 200 MILLIGRAM/SQ. METER (200 MG/M2, IV, D1/D15/D29 AND D43 PRE- AND POST OP. DOSE GIVEN BEFORE EVENT
     Route: 042
     Dates: start: 20240318
  4. LEUCOVORIN [Suspect]
     Active Substance: LEUCOVORIN\LEUCOVORIN CALCIUM
     Dosage: 275 MILLIGRAM
     Route: 065
     Dates: start: 20240318
  5. OXALIPLATIN [Suspect]
     Active Substance: OXALIPLATIN
     Indication: Oesophageal adenocarcinoma
     Dosage: 85 MILLIGRAM/SQ. METER (85 MG/M2, IV, D1/D15/D29 AND D43 PRE- AND POST OP. DOSE GIVEN BEFORE ONSET O
     Route: 042
     Dates: start: 20240318
  6. OXALIPLATIN [Suspect]
     Active Substance: OXALIPLATIN
     Dosage: 120 MILLIGRAM
     Route: 065
     Dates: start: 20240318
  7. PEMBROLIZUMAB [Suspect]
     Active Substance: PEMBROLIZUMAB
     Indication: Oesophageal adenocarcinoma
     Dosage: 200 MILLIGRAM (200 MG FLAT DOSE, IV, D1/D22/D43 PRE- AND POST OP, AFTERWARDS D1Q3W;)
     Route: 042
     Dates: start: 20240318, end: 20240819
  8. FLUOROURACIL [Suspect]
     Active Substance: FLUOROURACIL
     Indication: Oesophageal adenocarcinoma
     Dosage: 3800 MILLIGRAM (2600 MG/M2, IV, D1/D15/D29 AND D43 PRE- AND POST OP. DOSE GIVEN BEFORE EVENT ONSET W
     Route: 042
     Dates: start: 20240318
  9. FLUOROURACIL [Suspect]
     Active Substance: FLUOROURACIL
     Dosage: 3650 MILLIGRAM (2600 MG/M2, IV, D1/D15/D29 AND D43 PRE- AND POST OP. DOSE GIVEN BEFORE EVENT ONSET W
     Route: 042
     Dates: start: 20240318
  10. FLUOROURACIL [Suspect]
     Active Substance: FLUOROURACIL
     Dosage: 2600 MILLIGRAM ( (2600 MG/M2, IV, D1/D15/D29 AND D43 PRE- AND POST OP. DOSE GIVEN BEFORE EVENT ONSET
     Route: 042
     Dates: start: 20240318
  11. TRASTUZUMAB [Suspect]
     Active Substance: TRASTUZUMAB
     Indication: Oesophageal adenocarcinoma
     Dosage: 6 MILLIGRAM/KILOGRAM (6MG/KG IV D22/D43 PRE- AND POST OP, AFTERWARDS 6MG/KG IV D1 Q3W. DOSE GIVEN BE
     Route: 042
  12. TRASTUZUMAB [Suspect]
     Active Substance: TRASTUZUMAB
     Dosage: 8 MILLIGRAM/KILOGRAM (D1 8MG/KG IV;)
     Route: 042
     Dates: start: 20240318
  13. TRASTUZUMAB [Suspect]
     Active Substance: TRASTUZUMAB
     Dosage: 6 MILLIGRAM/KILOGRAM (6MG/KG IV D22/D43 PRE- AND POST OP, AFTERWARDS 6MG/KG IV D1 Q3W. DOSE GIVEN BE
     Route: 042
     Dates: start: 20240819

REACTIONS (4)
  - Acute myocardial infarction [Recovered/Resolved]
  - Immune-mediated myocarditis [Recovered/Resolved]
  - Coronary artery disease [Unknown]
  - Off label use [Unknown]

NARRATIVE: CASE EVENT DATE: 20240805
